FAERS Safety Report 15608702 (Version 3)
Quarter: 2018Q4

REPORT INFORMATION
  Report Type: Spontaneous
  Country: US (occurrence: US)
  Receive Date: 20181112
  Receipt Date: 20181127
  Transmission Date: 20190205
  Serious: No
  Sender: FDA-Public Use
  Company Number: US-SA-2018SA306592

PATIENT
  Age: 75 Year
  Sex: Female
  Weight: 70 kg

DRUGS (11)
  1. FLUAD NOS [Concomitant]
     Active Substance: INFLUENZA VIRUS VACCINE
  2. VITAMIN D3 [Concomitant]
     Active Substance: CHOLECALCIFEROL
  3. ALENDRONATE SODIUM. [Concomitant]
     Active Substance: ALENDRONATE SODIUM
  4. AMLODIPINE BESYLATE. [Concomitant]
     Active Substance: AMLODIPINE BESYLATE
  5. VITAMIN B1 [THIAMINE] [Concomitant]
  6. PRALUENT [Suspect]
     Active Substance: ALIROCUMAB
     Indication: TYPE IIA HYPERLIPIDAEMIA
     Dosage: 150 MG, QOW
     Route: 058
     Dates: start: 201808
  7. VITAMIN C [Concomitant]
     Active Substance: ASCORBIC ACID
  8. ASA [Concomitant]
     Active Substance: ASPIRIN
     Dosage: 81 MG
  9. CALCIUM CARBONATE. [Concomitant]
     Active Substance: CALCIUM CARBONATE
  10. FISH OIL [Concomitant]
     Active Substance: FISH OIL
  11. VITAMIN B12 [Concomitant]
     Active Substance: CYANOCOBALAMIN

REACTIONS (2)
  - Injection site pruritus [Unknown]
  - Injection site erythema [Unknown]

NARRATIVE: CASE EVENT DATE: 2018
